FAERS Safety Report 22228215 (Version 8)
Quarter: 2024Q1

REPORT INFORMATION
  Report Type: Spontaneous
  Country: FR (occurrence: FR)
  Receive Date: 20230419
  Receipt Date: 20240221
  Transmission Date: 20240410
  Serious: Yes (Other)
  Sender: FDA-Public Use
  Company Number: FR-Accord-308113

PATIENT
  Age: 68 Year
  Sex: Female

DRUGS (24)
  1. AFATINIB [Suspect]
     Active Substance: AFATINIB
     Indication: Lung adenocarcinoma
     Dosage: UNK
     Dates: start: 2020, end: 202009
  2. IMATINIB [Suspect]
     Active Substance: IMATINIB
     Indication: Gastrointestinal stromal tumour
     Dosage: DOSAGE TEXT: ONCE DAILY
     Route: 065
     Dates: start: 202104, end: 202110
  3. IMATINIB [Suspect]
     Active Substance: IMATINIB
     Indication: Lung adenocarcinoma
     Dosage: DOSAGE TEXT: ONCE DAILY
     Route: 065
     Dates: start: 2021
  4. IMATINIB [Suspect]
     Active Substance: IMATINIB
     Indication: Non-small cell lung cancer
     Dosage: DOSAGE TEXT: ONCE DAILY
     Route: 065
     Dates: start: 202201, end: 202203
  5. IMATINIB [Suspect]
     Active Substance: IMATINIB
     Indication: Gastrointestinal stromal tumour
     Dosage: DOSAGE TEXT: ONCE DAILY
     Route: 065
  6. IMATINIB [Suspect]
     Active Substance: IMATINIB
     Indication: Product used for unknown indication
     Route: 065
     Dates: end: 202009
  7. IMATINIB [Suspect]
     Active Substance: IMATINIB
     Dosage: UNK
     Route: 065
     Dates: start: 200812
  8. IMATINIB [Suspect]
     Active Substance: IMATINIB
     Route: 065
     Dates: start: 202104, end: 202104
  9. IMATINIB [Suspect]
     Active Substance: IMATINIB
     Route: 065
     Dates: start: 202206
  10. IMATINIB [Suspect]
     Active Substance: IMATINIB
     Route: 065
     Dates: start: 202203, end: 202206
  11. IMATINIB [Suspect]
     Active Substance: IMATINIB
     Route: 065
     Dates: end: 200804
  12. IMATINIB [Suspect]
     Active Substance: IMATINIB
     Dates: start: 2020, end: 2020
  13. OSIMERTINIB [Suspect]
     Active Substance: OSIMERTINIB
     Indication: Gastrointestinal stromal tumour
     Dates: start: 202009
  14. OSIMERTINIB [Suspect]
     Active Substance: OSIMERTINIB
     Indication: Lung adenocarcinoma
     Dates: start: 202009
  15. OSIMERTINIB [Suspect]
     Active Substance: OSIMERTINIB
     Indication: Drug resistance
     Route: 065
     Dates: start: 202104
  16. OSIMERTINIB [Suspect]
     Active Substance: OSIMERTINIB
     Dosage: (DOSE REDUCTION)
     Route: 065
     Dates: start: 202104
  17. CRIZOTINIB [Suspect]
     Active Substance: CRIZOTINIB
     Indication: Lung adenocarcinoma
     Dosage: DOSAGE TEXT: ONCE DAILY
     Route: 065
     Dates: start: 2021
  18. CRIZOTINIB [Suspect]
     Active Substance: CRIZOTINIB
     Indication: Drug resistance
     Dosage: DOSAGE TEXT: ONCE DAILY
     Route: 065
     Dates: start: 2021
  19. CRIZOTINIB [Suspect]
     Active Substance: CRIZOTINIB
     Indication: Non-small cell lung cancer
     Route: 065
     Dates: start: 202201
  20. CRIZOTINIB [Suspect]
     Active Substance: CRIZOTINIB
     Route: 065
  21. CRIZOTINIB [Suspect]
     Active Substance: CRIZOTINIB
     Dosage: (REDUCED DOSE)
     Route: 065
     Dates: start: 202111
  22. CRIZOTINIB [Suspect]
     Active Substance: CRIZOTINIB
     Route: 065
     Dates: start: 202110
  23. CRIZOTINIB [Suspect]
     Active Substance: CRIZOTINIB
     Route: 065
     Dates: end: 202203
  24. CRIZOTINIB [Suspect]
     Active Substance: CRIZOTINIB
     Route: 065
     Dates: start: 202203, end: 202206

REACTIONS (19)
  - Diarrhoea [Unknown]
  - Alanine aminotransferase increased [Recovered/Resolved]
  - Hepatic cytolysis [Recovering/Resolving]
  - Renal failure [Recovering/Resolving]
  - Blood creatine phosphokinase increased [Recovering/Resolving]
  - Drug interaction [Recovering/Resolving]
  - Drug level increased [Recovering/Resolving]
  - Drug interaction [Recovering/Resolving]
  - Acute kidney injury [Recovering/Resolving]
  - Drug resistance [Unknown]
  - Drug ineffective [Unknown]
  - Blood creatine phosphokinase increased [Unknown]
  - Diarrhoea [Unknown]
  - Lung adenocarcinoma [Unknown]
  - Neoplasm progression [Unknown]
  - Drug resistance mutation [Unknown]
  - Off label use [Unknown]
  - Drug interaction [Unknown]
  - Overdose [Unknown]

NARRATIVE: CASE EVENT DATE: 20200101
